FAERS Safety Report 6170279-7 (Version None)
Quarter: 2009Q2

REPORT INFORMATION
  Report Type: 
  Country: None (occurrence: None)
  Receive Date: 20090428
  Receipt Date: 20090416
  Transmission Date: 20091009
  Serious: Yes (Hospitalization)
  Sender: FDA-Public Use
  Company Number: JP-PFIZER INC-2009200849

PATIENT

DRUGS (5)
  1. FLUOROURACIL [Suspect]
     Indication: COLORECTAL CANCER
     Dosage: 400 MG, EVERY 2 WEEKS
     Route: 040
     Dates: start: 20090212
  2. FLUOROURACIL [Suspect]
     Dosage: 2500 MG, EVERY 2 WEEKS
     Route: 041
     Dates: start: 20090212
  3. LEUCOVORIN CALCIUM [Suspect]
     Indication: COLORECTAL CANCER
     Dosage: 200 MG, EVERY 2 WEEKS
     Route: 042
     Dates: start: 20090212
  4. SUNITINIB MALATE [Suspect]
     Indication: COLORECTAL CANCER
     Dosage: 37.5 MG, 1X/DAY
     Route: 048
     Dates: start: 20090212
  5. IRINOTECAN HCL [Suspect]
     Indication: COLORECTAL CANCER
     Dosage: 182 MG, EVERY 2 WEEKS
     Route: 042
     Dates: start: 20090212

REACTIONS (1)
  - HYPERTENSION [None]
